FAERS Safety Report 23250842 (Version 1)
Quarter: 2023Q4

REPORT INFORMATION
  Report Type: Spontaneous
  Country: AU (occurrence: AU)
  Receive Date: 20231201
  Receipt Date: 20231201
  Transmission Date: 20240110
  Serious: Yes (Hospitalization, Other)
  Sender: FDA-Public Use
  Company Number: AU-GLAXOSMITHKLINE-AU2023APC163578

PATIENT

DRUGS (17)
  1. VENTOLIN [Suspect]
     Active Substance: ALBUTEROL SULFATE
     Indication: Asthma
     Dosage: UNK
  2. CICLESONIDE [Suspect]
     Active Substance: CICLESONIDE
     Indication: Asthma
     Dosage: 1 PUFF(S), BID
  3. NICOTINE [Suspect]
     Active Substance: NICOTINE
     Indication: Tobacco user
     Dosage: 1 DF, QD
  4. PREDNISOLONE [Suspect]
     Active Substance: PREDNISOLONE
     Indication: Asthma
     Dosage: 1 DF, QD
  5. CLOZAPINE [Suspect]
     Active Substance: CLOZAPINE
     Indication: Schizophrenia
     Dosage: 2 DF, BID
  6. ATORVASTATIN [Suspect]
     Active Substance: ATORVASTATIN
     Indication: Hypercholesterolaemia
     Dosage: 1 DF, QD
  7. CHOLESTYRAMINE [Suspect]
     Active Substance: CHOLESTYRAMINE
     Indication: Prophylaxis
     Dosage: 1 DF, BID
  8. DOCUSATE [Suspect]
     Active Substance: DOCUSATE
     Indication: Constipation
     Dosage: UNK,1 OR 2 TABLET WHEN REQUIRED
  9. ESOMEPRAZOLE [Suspect]
     Active Substance: ESOMEPRAZOLE
     Indication: Dyspepsia
     Dosage: 1 DF, QD
  10. FENOFIBRATE [Suspect]
     Active Substance: FENOFIBRATE
     Indication: Prophylaxis
     Dosage: 1 DF, QD
  11. FENOFIBRATE [Suspect]
     Active Substance: FENOFIBRATE
     Indication: Hypercholesterolaemia
  12. LOPERAMIDE [Suspect]
     Active Substance: LOPERAMIDE
     Indication: Prophylaxis
     Dosage: 1 DF, TID
  13. ACETAMINOPHEN [Suspect]
     Active Substance: ACETAMINOPHEN
     Indication: Umbilical hernia
     Dosage: 2 DF, QID
  14. ACETAMINOPHEN [Suspect]
     Active Substance: ACETAMINOPHEN
     Indication: Pain
  15. PREGABALIN [Suspect]
     Active Substance: PREGABALIN
     Indication: Prophylaxis
     Dosage: 1 DF, BID
  16. CELECOXIB [Suspect]
     Active Substance: CELECOXIB
     Indication: Product used for unknown indication
     Dosage: UNK
  17. OXYCODONE [Suspect]
     Active Substance: OXYCODONE
     Indication: Product used for unknown indication
     Dosage: 5 MG

REACTIONS (11)
  - Dyspnoea [Unknown]
  - Cough [Unknown]
  - Headache [Unknown]
  - Decreased appetite [Unknown]
  - Musculoskeletal chest pain [Unknown]
  - Oxygen saturation decreased [Unknown]
  - Wheezing [Unknown]
  - Oropharyngeal pain [Unknown]
  - Constipation [Unknown]
  - Hypokalaemia [Unknown]
  - Neutropenia [Unknown]
